FAERS Safety Report 25274938 (Version 2)
Quarter: 2025Q2

REPORT INFORMATION
  Report Type: Report from Study
  Country: US (occurrence: US)
  Receive Date: 20250506
  Receipt Date: 20250529
  Transmission Date: 20250716
  Serious: Yes (Hospitalization, Other)
  Sender: TAKEDA
  Company Number: US-TAKEDA-2024TUS046005

PATIENT
  Sex: Female

DRUGS (4)
  1. TEDUGLUTIDE [Suspect]
     Active Substance: TEDUGLUTIDE
     Indication: Crohn^s disease
     Dosage: 0.47 MILLILITER, QD
     Dates: start: 20240405
  2. TEDUGLUTIDE [Suspect]
     Active Substance: TEDUGLUTIDE
     Indication: Malnutrition
     Dosage: 0.47 MILLILITER, QD
     Dates: start: 202404
  3. TEDUGLUTIDE [Suspect]
     Active Substance: TEDUGLUTIDE
     Indication: Phlebitis
  4. TEDUGLUTIDE [Suspect]
     Active Substance: TEDUGLUTIDE
     Indication: Thrombophlebitis

REACTIONS (13)
  - Procedural complication [Unknown]
  - Neuropathy peripheral [Unknown]
  - Small intestinal obstruction [Recovered/Resolved]
  - Hyperhidrosis [Unknown]
  - Eating disorder [Unknown]
  - Pain [Unknown]
  - Malaise [Not Recovered/Not Resolved]
  - Weight decreased [Unknown]
  - Product use issue [Unknown]
  - Product use in unapproved indication [Unknown]
  - Peripheral swelling [Unknown]
  - Pruritus [Unknown]
  - Abdominal pain upper [Unknown]
